FAERS Safety Report 4687472-2 (Version None)
Quarter: 2005Q2

REPORT INFORMATION
  Report Type: 
  Country: None (occurrence: None)
  Receive Date: 20050610
  Receipt Date: 20020923
  Transmission Date: 20051028
  Serious: Yes (Life-Threatening, Hospitalization)
  Sender: FDA-Public Use
  Company Number: AU-ABBOTT-02P-008-0200591-00

PATIENT
  Sex: Female

DRUGS (9)
  1. EPILIM TABLETS [Suspect]
     Indication: PSYCHOTIC DISORDER
     Route: 048
     Dates: start: 20020806, end: 20020806
  2. EPILIM TABLETS [Suspect]
     Indication: INTENTIONAL MISUSE
     Route: 048
     Dates: start: 20020424, end: 20020806
  3. EPILIM TABLETS [Suspect]
  4. OLANZAPINE [Suspect]
     Indication: SCHIZOPHRENIA
     Route: 048
     Dates: start: 20020806, end: 20020806
  5. OLANZAPINE [Suspect]
     Indication: INTENTIONAL MISUSE
     Route: 048
     Dates: start: 19990428, end: 20020806
  6. HALOPERIDOL [Suspect]
     Indication: PSYCHOTIC DISORDER
     Route: 048
     Dates: start: 20020806, end: 20020806
  7. HALOPERIDOL [Suspect]
     Indication: INTENTIONAL MISUSE
     Route: 048
     Dates: start: 19820101, end: 20020806
  8. TRIFEME [Concomitant]
     Indication: CONTRACEPTION
     Route: 048
     Dates: start: 20020601
  9. BEKUNIS [Concomitant]
     Indication: LAXATIVE SUPPORTIVE CARE
     Route: 048
     Dates: start: 20020601

REACTIONS (8)
  - COMA [None]
  - CONDITION AGGRAVATED [None]
  - DELIRIUM [None]
  - HALLUCINATION, AUDITORY [None]
  - INTENTIONAL MISUSE [None]
  - LOSS OF CONSCIOUSNESS [None]
  - MULTIPLE DRUG OVERDOSE [None]
  - SUICIDE ATTEMPT [None]
